FAERS Safety Report 7777649-1 (Version None)
Quarter: 2011Q3

REPORT INFORMATION
  Report Type: 
  Country: None (occurrence: None)
  Receive Date: 20110926
  Receipt Date: 20110920
  Transmission Date: 20111222
  Serious: Yes (Hospitalization)
  Sender: FDA-Public Use
  Company Number: DE-PFIZER INC-2011222389

PATIENT
  Age: 69 Year
  Sex: Female

DRUGS (5)
  1. MABTHERA [Suspect]
     Indication: NON-HODGKIN'S LYMPHOMA
     Dosage: 375 MG/M2, D1
     Dates: start: 20100101, end: 20100501
  2. DOXORUBICIN HCL [Suspect]
     Indication: NON-HODGKIN'S LYMPHOMA
     Dosage: 50 MG/M2, DAY ONE OF CYCLE (D1)
     Route: 042
     Dates: start: 20100101, end: 20100501
  3. VINCRISTINE [Suspect]
     Indication: NON-HODGKIN'S LYMPHOMA
     Dosage: 2 MG, D1
     Route: 042
     Dates: start: 20100101, end: 20100501
  4. CYCLOPHOSPHAMIDE [Suspect]
     Indication: NON-HODGKIN'S LYMPHOMA
     Dosage: 750 MG/M2, D1
     Route: 042
     Dates: start: 20100101, end: 20100501
  5. PREDNISOLONE [Suspect]
     Indication: NON-HODGKIN'S LYMPHOMA
     Dosage: 100 MG, D1-5
     Route: 048
     Dates: start: 20100101, end: 20100501

REACTIONS (2)
  - HEPATITIS B [None]
  - SUBACUTE HEPATIC FAILURE [None]
